FAERS Safety Report 9752060 (Version 1)
Quarter: 2013Q4

REPORT INFORMATION
  Report Type: Spontaneous
  Country: JP (occurrence: None)
  Receive Date: 20131211
  Receipt Date: 20131211
  Transmission Date: 20140711
  Serious: Yes (Other)
  Sender: FDA-Public Use
  Company Number: 2013P1021737

PATIENT
  Age: 77 Year
  Sex: Female

DRUGS (2)
  1. DONEPEZIL [Suspect]
     Indication: DEMENTIA ALZHEIMER^S TYPE
  2. MEMANTINE [Suspect]
     Indication: DEMENTIA ALZHEIMER^S TYPE

REACTIONS (4)
  - Electrocardiogram PR prolongation [None]
  - Bradycardia [None]
  - Potentiating drug interaction [None]
  - Drug level increased [None]
